FAERS Safety Report 24110723 (Version 1)
Quarter: 2024Q3

REPORT INFORMATION
  Report Type: Spontaneous
  Country: US (occurrence: None)
  Receive Date: 20240717
  Receipt Date: 20240717
  Transmission Date: 20241017
  Serious: No
  Sender: Public
  Company Number: None

PATIENT
  Sex: Female
  Weight: 67.5 kg

DRUGS (1)
  1. ZOLEDRONIC ACID [Suspect]
     Active Substance: ZOLEDRONIC ACID
     Indication: Osteoporosis
     Dosage: OTHER FREQUENCY : ANNUALLY;?
     Route: 042

REACTIONS (12)
  - Influenza like illness [None]
  - Muscle spasms [None]
  - Back pain [None]
  - Sensitive skin [None]
  - Pain in extremity [None]
  - Paraesthesia [None]
  - Paraesthesia [None]
  - Neck pain [None]
  - Hyperaesthesia teeth [None]
  - Flank pain [None]
  - Headache [None]
  - Pain [None]

NARRATIVE: CASE EVENT DATE: 20240621
